FAERS Safety Report 24906754 (Version 1)
Quarter: 2025Q1

REPORT INFORMATION
  Report Type: Spontaneous
  Country: US (occurrence: US)
  Receive Date: 20250130
  Receipt Date: 20250130
  Transmission Date: 20250409
  Serious: No
  Sender: SANOFI AVENTIS
  Company Number: US-SA-2025SA028849

PATIENT
  Age: 61 Year
  Sex: Female

DRUGS (14)
  1. DUPIXENT [Suspect]
     Active Substance: DUPILUMAB
     Indication: Dermatitis atopic
     Dosage: 300 MG, QOW
     Route: 058
  2. ALPRAZOLAM [Concomitant]
     Active Substance: ALPRAZOLAM
  3. MAGNESIUM [Concomitant]
     Active Substance: MAGNESIUM
  4. MONTELUKAST [Concomitant]
     Active Substance: MONTELUKAST
  5. NAPROXEN SODIUM [Concomitant]
     Active Substance: NAPROXEN SODIUM
  6. OMEGA-3 FATTY ACIDS [Concomitant]
     Active Substance: OMEGA-3 FATTY ACIDS
  7. POTASSIUM [Concomitant]
     Active Substance: POTASSIUM
  8. PROBIOTICS NOS [Concomitant]
     Active Substance: PROBIOTICS NOS
  9. TACROLIMUS [Concomitant]
     Active Substance: TACROLIMUS
  10. VENTOLIN HFA [Concomitant]
     Active Substance: ALBUTEROL SULFATE
  11. VITAMIN D NOS [Concomitant]
     Active Substance: CHOLECALCIFEROL\ERGOCALCIFEROL
  12. WIXELA INHUB [Concomitant]
     Active Substance: FLUTICASONE PROPIONATE\SALMETEROL XINAFOATE
  13. ZORYVE [Concomitant]
     Active Substance: ROFLUMILAST
  14. ZYRTEC [Concomitant]
     Active Substance: CETIRIZINE HYDROCHLORIDE

REACTIONS (3)
  - Sleep disorder due to a general medical condition [Not Recovered/Not Resolved]
  - Speech disorder [Not Recovered/Not Resolved]
  - Swollen tongue [Not Recovered/Not Resolved]
